FAERS Safety Report 4526479-2 (Version None)
Quarter: 2004Q4

REPORT INFORMATION
  Report Type: 
  Country: None (occurrence: None)
  Receive Date: 20041214
  Receipt Date: 20041203
  Transmission Date: 20050328
  Serious: Yes (Hospitalization)
  Sender: FDA-Public Use
  Company Number: GB-MERCK-0412GBR00042

PATIENT
  Age: 86 Year
  Sex: Male

DRUGS (7)
  1. TIMOPTIC [Suspect]
     Route: 047
     Dates: start: 20000101, end: 20041118
  2. ATENOLOL [Suspect]
     Route: 048
     Dates: start: 20041001, end: 20041118
  3. ATENOLOL [Suspect]
     Route: 048
  4. NIFEDIPINE [Concomitant]
     Route: 048
  5. LATANOPROST [Concomitant]
     Route: 047
  6. BEZAFIBRATE [Concomitant]
     Route: 065
  7. IBUPROFEN [Concomitant]
     Route: 065

REACTIONS (5)
  - BRADYCARDIA [None]
  - CONFUSIONAL STATE [None]
  - FALL [None]
  - GASTROINTESTINAL DISORDER [None]
  - URINARY TRACT INFECTION [None]
